FAERS Safety Report 8935855 (Version 2)
Quarter: 2012Q4

REPORT INFORMATION
  Report Type: 
  Country: RS (occurrence: RS)
  Receive Date: 20121130
  Receipt Date: 20121214
  Transmission Date: 20130627
  Serious: Yes (Hospitalization, Other)
  Sender: FDA-Public Use
  Company Number: RS-BAYER-2012-123034

PATIENT
  Age: 20 Year
  Sex: Female

DRUGS (1)
  1. YAZ [Suspect]
     Indication: CONTRACEPTION

REACTIONS (11)
  - Coma [Recovered/Resolved]
  - Idiopathic thrombocytopenic purpura [Recovered/Resolved]
  - Bacterial sepsis [Recovered/Resolved]
  - Subcutaneous haematoma [Recovered/Resolved]
  - Loss of consciousness [Recovered/Resolved]
  - Respiratory tract infection [Recovered/Resolved]
  - Headache [Recovered/Resolved]
  - Purpura [Recovered/Resolved]
  - Fall [Recovered/Resolved]
  - Pyrexia [Recovered/Resolved]
  - Haematuria [Recovered/Resolved]
